FAERS Safety Report 7986570-5 (Version None)
Quarter: 2011Q4

REPORT INFORMATION
  Report Type: 
  Country: None (occurrence: None)
  Receive Date: 20111216
  Receipt Date: 20110720
  Transmission Date: 20120403
  Serious: Yes (Hospitalization, Other)
  Sender: FDA-Public Use
  Company Number: US-BRISTOL-MYERS SQUIBB COMPANY-15922305

PATIENT

DRUGS (1)
  1. ABILIFY [Suspect]
     Dosage: DURATION: FOR 8 WEEKS

REACTIONS (2)
  - VOMITING [None]
  - CONVULSION [None]
